FAERS Safety Report 17587514 (Version 3)
Quarter: 2020Q3

REPORT INFORMATION
  Report Type: Report from Study
  Country: US (occurrence: US)
  Receive Date: 20200326
  Receipt Date: 20200729
  Transmission Date: 20201102
  Serious: Yes (Hospitalization)
  Sender: FDA-Public Use
  Company Number: US-ACTELION-A-NJ2019-196923

PATIENT
  Sex: Female
  Weight: 83.9 kg

DRUGS (6)
  1. UPTRAVI [Suspect]
     Active Substance: SELEXIPAG
     Indication: PULMONARY ARTERIAL HYPERTENSION
     Dosage: 1600 MCG, BID
     Route: 048
  2. ELIQUIS [Concomitant]
     Active Substance: APIXABAN
  3. SILDENAFIL CITRATE. [Concomitant]
     Active Substance: SILDENAFIL CITRATE
  4. AMLODIPINE [Concomitant]
     Active Substance: AMLODIPINE BESYLATE
  5. UPTRAVI [Suspect]
     Active Substance: SELEXIPAG
     Dosage: 1000 MCG, BID
     Route: 048
  6. AMBRISENTAN [Concomitant]
     Active Substance: AMBRISENTAN

REACTIONS (10)
  - Large intestinal obstruction [Unknown]
  - Eructation [Unknown]
  - Pain in extremity [Unknown]
  - Gait disturbance [Unknown]
  - Headache [Unknown]
  - Intestinal obstruction [Unknown]
  - Myalgia [Unknown]
  - Arthralgia [Unknown]
  - Muscular weakness [Unknown]
  - Oedema [Unknown]
